FAERS Safety Report 5888283-2 (Version None)
Quarter: 2008Q3

REPORT INFORMATION
  Report Type: 
  Country: None (occurrence: None)
  Receive Date: 20080918
  Receipt Date: 20051208
  Transmission Date: 20090109
  Serious: Yes (Other)
  Sender: FDA-Public Use
  Company Number: IT-ROCHE-572271

PATIENT
  Sex: Male

DRUGS (4)
  1. PEGASYS [Suspect]
     Route: 065
     Dates: start: 20031005
  2. PEGASYS [Suspect]
     Dosage: DOSE REDUCED.
     Route: 065
     Dates: start: 20040115
  3. RIBAVIRIN [Suspect]
     Route: 065
     Dates: start: 20031005
  4. RIBAVIRIN [Suspect]
     Dosage: DOSE REDUCED.
     Route: 065
     Dates: start: 20040115

REACTIONS (1)
  - LYMPHADENOPATHY [None]
